FAERS Safety Report 15011222 (Version 8)
Quarter: 2018Q4

REPORT INFORMATION
  Report Type: Report from Study
  Country: US (occurrence: US)
  Receive Date: 20180614
  Receipt Date: 20181121
  Transmission Date: 20190204
  Serious: Yes (Hospitalization)
  Sender: FDA-Public Use
  Company Number: US-ROCHE-2134431

PATIENT
  Age: 54 Year
  Sex: Female
  Weight: 89.17 kg

DRUGS (19)
  1. LEVAQUIN [Concomitant]
     Active Substance: LEVOFLOXACIN
     Route: 065
     Dates: start: 20180611, end: 20180617
  2. ATEZOLIZUMAB. [Suspect]
     Active Substance: ATEZOLIZUMAB
     Indication: BREAST CANCER METASTATIC
     Dosage: DOSE OF LAST ATEZOLIZUMAB ADMINISTERED PRIOR TO AE ONSET 21 MAY 2018 (1200 MG)
     Route: 042
     Dates: start: 20180521
  3. BAG BALM [Concomitant]
     Active Substance: OXYQUINOLINE SULFATE
     Indication: PALMAR-PLANTAR ERYTHRODYSAESTHESIA SYNDROME
     Dosage: 1 OTHER
     Route: 061
     Dates: start: 20180414
  4. LEVAQUIN [Concomitant]
     Active Substance: LEVOFLOXACIN
     Route: 042
  5. ERIBULIN MESYLATE [Suspect]
     Active Substance: ERIBULIN MESYLATE
     Indication: BREAST CANCER METASTATIC
     Dosage: DOSE OF LAST ERIBULIN MESYLATE ADMINISTERED PRIOR TO AE ONSET  21 MAY 2018 (2.79)
     Route: 042
     Dates: start: 20180521
  6. ZARXIO [Concomitant]
     Active Substance: FILGRASTIM-SNDZ
     Indication: NEUTROPHIL COUNT DECREASED
     Route: 058
     Dates: start: 20180531, end: 20180531
  7. TYLENOL [Concomitant]
     Active Substance: ACETAMINOPHEN
     Route: 048
     Dates: start: 20180529
  8. ZARXIO [Concomitant]
     Active Substance: FILGRASTIM-SNDZ
     Route: 058
  9. OXYCODONE [Concomitant]
     Active Substance: OXYCODONE
     Indication: ABDOMINAL PAIN UPPER
     Route: 048
     Dates: start: 20180521
  10. LEVAQUIN [Concomitant]
     Active Substance: LEVOFLOXACIN
     Indication: PYREXIA
     Route: 042
     Dates: start: 20180531, end: 20180531
  11. OXYCODONE [Concomitant]
     Active Substance: OXYCODONE
     Route: 048
     Dates: start: 20180519, end: 20180519
  12. TYLENOL [Concomitant]
     Active Substance: ACETAMINOPHEN
     Route: 048
     Dates: start: 20180601, end: 20180601
  13. RANITIDINE. [Concomitant]
     Active Substance: RANITIDINE
     Indication: DYSPEPSIA
     Route: 048
     Dates: start: 20180523
  14. POTASSIUM CHLORIDE. [Concomitant]
     Active Substance: POTASSIUM CHLORIDE
     Indication: HYPOKALAEMIA
     Dosage: 60 OTHER
     Route: 048
     Dates: start: 20180529, end: 20180529
  15. NORMAL SALINE [Concomitant]
     Active Substance: SODIUM CHLORIDE
     Indication: SINUS TACHYCARDIA
     Route: 042
     Dates: start: 20180531, end: 20180531
  16. FLAGYL [Concomitant]
     Active Substance: METRONIDAZOLE\METRONIDAZOLE HYDROCHLORIDE
     Indication: PYREXIA
     Route: 048
     Dates: start: 20180531
  17. CAPECITABINE. [Suspect]
     Active Substance: CAPECITABINE
     Indication: BREAST CANCER METASTATIC
     Dosage: DATE OF MOST RECENT DOSE OF CAPECITABINE PRIOR TO AE ONSET 07 MAY 2018 (1500)
     Route: 048
     Dates: start: 20180402
  18. TYLENOL [Concomitant]
     Active Substance: ACETAMINOPHEN
     Indication: PYREXIA
     Route: 048
     Dates: start: 20180511, end: 20180511
  19. ACETAMINOPHEN. [Concomitant]
     Active Substance: ACETAMINOPHEN
     Indication: ABDOMINAL PAIN UPPER
     Route: 048
     Dates: start: 20180519, end: 20180519

REACTIONS (1)
  - Pyrexia [Recovered/Resolved]

NARRATIVE: CASE EVENT DATE: 20180601
